FAERS Safety Report 9174138 (Version 2)
Quarter: 2013Q1

REPORT INFORMATION
  Report Type: Spontaneous
  Country: US (occurrence: US)
  Receive Date: 20130320
  Receipt Date: 20130329
  Transmission Date: 20140127
  Serious: No
  Sender: FDA-Public Use
  Company Number: US-PFIZER INC-2013087914

PATIENT
  Age: 54 Year
  Sex: Female
  Weight: 68.02 kg

DRUGS (1)
  1. ESTRING [Suspect]
     Indication: MENOPAUSE
     Dosage: UNK
     Route: 067
     Dates: start: 201303, end: 201303

REACTIONS (2)
  - Product quality issue [Unknown]
  - Muscle spasms [Unknown]
